FAERS Safety Report 17865605 (Version 1)
Quarter: 2020Q2

REPORT INFORMATION
  Report Type: Spontaneous
  Country: US (occurrence: US)
  Receive Date: 20200605
  Receipt Date: 20200605
  Transmission Date: 20200714
  Serious: Yes (Disabling)
  Sender: FDA-Public Use
  Company Number: None

PATIENT
  Age: 54 Year
  Sex: Female
  Weight: 69.3 kg

DRUGS (12)
  1. HYDROCODONE [Concomitant]
     Active Substance: HYDROCODONE
  2. BIOTIN [Concomitant]
     Active Substance: BIOTIN
  3. VITAMIN E [Concomitant]
     Active Substance: .ALPHA.-TOCOPHEROL
  4. NP THYROID [Concomitant]
     Active Substance: LEVOTHYROXINE\LIOTHYRONINE
  5. ESTROGEN AND TESTOSTERONE HORMONE PELLETS [Concomitant]
  6. KRATOM [Concomitant]
     Active Substance: HERBALS\MITRAGYNINE
  7. NP THYROID [Suspect]
     Active Substance: LEVOTHYROXINE\LIOTHYRONINE
     Indication: HYPOTHYROIDISM
     Dosage: ?          QUANTITY:1 TABLET(S);?
     Route: 048
     Dates: start: 20200405, end: 20200604
  8. VITAMIN C [Concomitant]
     Active Substance: ASCORBIC ACID
  9. IBUPROFEN. [Concomitant]
     Active Substance: IBUPROFEN
  10. CALCIUM [Concomitant]
     Active Substance: CALCIUM
  11. DIAZAPAM [Concomitant]
     Active Substance: DIAZEPAM
  12. IRON [Concomitant]
     Active Substance: IRON

REACTIONS (7)
  - Myocardial infarction [None]
  - Dyspepsia [None]
  - Stress [None]
  - Anxiety [None]
  - Fatigue [None]
  - Heart rate increased [None]
  - Product substitution issue [None]

NARRATIVE: CASE EVENT DATE: 20200415
